FAERS Safety Report 5850102-8 (Version None)
Quarter: 2008Q3

REPORT INFORMATION
  Report Type: 
  Country: None (occurrence: None)
  Receive Date: 20080819
  Receipt Date: 20080814
  Transmission Date: 20090109
  Serious: Yes (Other)
  Sender: FDA-Public Use
  Company Number: US-BOEHRINGER INGELHEIM GMBH, GERMANY-2008-BP-12766RO

PATIENT
  Age: 49 Year
  Sex: Male

DRUGS (12)
  1. PREDNISONE TAB [Suspect]
     Indication: PEMPHIGUS
  2. PREDNISONE TAB [Suspect]
  3. METHOTREXATE [Suspect]
     Indication: PEMPHIGUS
     Route: 048
  4. METHOTREXATE [Suspect]
     Indication: DRUG INEFFECTIVE
  5. DAPSONE [Suspect]
     Indication: PEMPHIGUS
  6. DAPSONE [Suspect]
     Indication: DRUG INEFFECTIVE
  7. GOLD SODIUM THIOMALATE [Suspect]
     Indication: PEMPHIGUS
     Route: 030
  8. GOLD SODIUM THIOMALATE [Suspect]
     Route: 030
  9. TRIAMCINALONE [Concomitant]
     Indication: PEMPHIGUS
  10. RITUXIMAB [Concomitant]
     Indication: PEMPHIGUS
     Route: 042
  11. LIQUID NITROGEN SPRAY [Concomitant]
     Indication: KAPOSI'S SARCOMA
  12. SIROLIMUS [Concomitant]
     Indication: KAPOSI'S SARCOMA
     Route: 048

REACTIONS (2)
  - DRUG INEFFECTIVE [None]
  - KAPOSI'S SARCOMA [None]
